FAERS Safety Report 23306584 (Version 1)
Quarter: 2023Q4

REPORT INFORMATION
  Report Type: Report from Study
  Country: MX (occurrence: MX)
  Receive Date: 20231218
  Receipt Date: 20231218
  Transmission Date: 20240110
  Serious: Yes (Other)
  Sender: FDA-Public Use
  Company Number: MX-UCBSA-2023059261

PATIENT
  Age: 55 Year
  Sex: Female
  Weight: 63 kg

DRUGS (1)
  1. CERTOLIZUMAB PEGOL [Suspect]
     Active Substance: CERTOLIZUMAB PEGOL
     Indication: Rheumatoid arthritis
     Dosage: 200 MILLIGRAM, EV 2 WEEKS(QOW), SOLUTION FOR INJECTION
     Route: 058
     Dates: start: 20200518, end: 202306

REACTIONS (2)
  - Sjogren^s syndrome [Unknown]
  - Mucosal dryness [Recovering/Resolving]

NARRATIVE: CASE EVENT DATE: 20210501
